FAERS Safety Report 13853446 (Version 2)
Quarter: 2017Q4

REPORT INFORMATION
  Report Type: Report from Study
  Country: None (occurrence: US)
  Receive Date: 20170810
  Receipt Date: 20171125
  Transmission Date: 20180320
  Serious: Yes (Other)
  Sender: FDA-Public Use
  Company Number: US-ABBVIE-16K-163-1571167-00

PATIENT
  Sex: Female

DRUGS (1)
  1. HUMIRA [Suspect]
     Active Substance: ADALIMUMAB
     Indication: RHEUMATOID ARTHRITIS
     Route: 058
     Dates: start: 20150319, end: 20160218

REACTIONS (5)
  - Impaired healing [Unknown]
  - Tongue neoplasm benign [Recovered/Resolved]
  - Glossodynia [Unknown]
  - Tongue neoplasm benign [Unknown]
  - Impaired healing [Recovered/Resolved]
